FAERS Safety Report 21086711 (Version 1)
Quarter: 2022Q3

REPORT INFORMATION
  Report Type: Other
  Country: None (occurrence: US)
  Receive Date: 20220715
  Receipt Date: 20220715
  Transmission Date: 20221026
  Serious: Yes (Life-Threatening)
  Sender: FDA-Public Use
  Company Number: US-OrBion Pharmaceuticals Private Limited-2130901

PATIENT
  Age: 17 Year
  Sex: Female

DRUGS (1)
  1. DIVALPROEX SODIUM [Suspect]
     Active Substance: DIVALPROEX SODIUM
     Route: 065

REACTIONS (20)
  - Toxicity to various agents [Recovered/Resolved]
  - Coma [Recovered/Resolved]
  - Hypotension [Recovered/Resolved]
  - Metabolic acidosis [Recovered/Resolved]
  - Respiratory acidosis [Recovered/Resolved]
  - Hyperammonaemia [Recovered/Resolved]
  - Hyperlactacidaemia [Recovered/Resolved]
  - Mean arterial pressure decreased [Recovered/Resolved]
  - Pancytopenia [Recovered/Resolved]
  - Seizure [Recovered/Resolved]
  - Mydriasis [Recovered/Resolved]
  - Corneal reflex decreased [Recovered/Resolved]
  - Hypernatraemia [Recovered/Resolved]
  - Encephalopathy [Recovered/Resolved]
  - Multiple organ dysfunction syndrome [Recovered/Resolved]
  - Pancreatitis [Recovered/Resolved]
  - Pancreatitis necrotising [Recovered/Resolved]
  - Anaemia [Recovered/Resolved]
  - Thrombocytopenia [Recovered/Resolved]
  - Pancreatogenous diabetes [Recovered/Resolved]
